FAERS Safety Report 12397305 (Version 2)
Quarter: 2016Q3

REPORT INFORMATION
  Report Type: Spontaneous
  Country: AT (occurrence: AT)
  Receive Date: 20160524
  Receipt Date: 20160701
  Transmission Date: 20161109
  Serious: Yes (Other)
  Sender: FDA-Public Use
  Company Number: AT-ROCHE-1763274

PATIENT
  Age: 74 Year
  Sex: Female
  Weight: 64 kg

DRUGS (1)
  1. ROACTEMRA [Suspect]
     Active Substance: TOCILIZUMAB
     Indication: RHEUMATOID ARTHRITIS
     Dosage: SINCE 3 YEARS. DRUG INTRUPTED ON FEB/2016.
     Route: 042
     Dates: start: 20130717

REACTIONS (1)
  - Serous cystadenocarcinoma ovary [Recovered/Resolved]

NARRATIVE: CASE EVENT DATE: 201602
